FAERS Safety Report 15230857 (Version 2)
Quarter: 2018Q3

REPORT INFORMATION
  Report Type: Report from Study
  Country: IN (occurrence: IN)
  Receive Date: 20180802
  Receipt Date: 20180831
  Transmission Date: 20181010
  Serious: Yes (Hospitalization, Other)
  Sender: FDA-Public Use
  Company Number: IN-TORRENT-00001783

PATIENT
  Age: 60 Year
  Sex: Female

DRUGS (8)
  1. VALPROATE [Concomitant]
     Active Substance: VALPROIC ACID
     Indication: SEIZURE
     Dosage: UNKNOWN
  2. RISPERIDONE. [Suspect]
     Active Substance: RISPERIDONE
     Indication: PRODUCT USED FOR UNKNOWN INDICATION
     Dosage: UNKNOWN
     Dates: start: 2002
  3. DONEPEZIL. [Interacting]
     Active Substance: DONEPEZIL
     Indication: PRODUCT USED FOR UNKNOWN INDICATION
  4. OXCARBAZEPINE. [Suspect]
     Active Substance: OXCARBAZEPINE
     Indication: SEIZURE
  5. CITICOLINE [Interacting]
     Active Substance: CITICOLINE
     Indication: PRODUCT USED FOR UNKNOWN INDICATION
  6. CLOBAZAM [Suspect]
     Active Substance: CLOBAZAM
     Indication: SEIZURE
  7. PIRACETAM [Interacting]
     Active Substance: PIRACETAM
     Indication: PRODUCT USED FOR UNKNOWN INDICATION
  8. OLMESARTAN [Concomitant]
     Active Substance: OLMESARTAN
     Indication: PRODUCT USED FOR UNKNOWN INDICATION

REACTIONS (4)
  - Neuroleptic malignant syndrome [Recovered/Resolved]
  - Multiple drug therapy [Unknown]
  - Drug interaction [Unknown]
  - Drug effect incomplete [Unknown]
